FAERS Safety Report 7486210-8 (Version None)
Quarter: 2011Q2

REPORT INFORMATION
  Report Type: 
  Country: None (occurrence: None)
  Receive Date: 20110517
  Receipt Date: 20110120
  Transmission Date: 20111010
  Serious: No
  Sender: FDA-Public Use
  Company Number: A0907720A

PATIENT
  Sex: Male

DRUGS (2)
  1. VOTRIENT [Suspect]
     Dosage: 400MG PER DAY
     Route: 048
     Dates: start: 20110101
  2. NO CONCURRENT MEDICATION [Concomitant]

REACTIONS (2)
  - OEDEMA PERIPHERAL [None]
  - LOCALISED OEDEMA [None]
